FAERS Safety Report 19227433 (Version 1)
Quarter: 2021Q2

REPORT INFORMATION
  Report Type: Spontaneous
  Country: US (occurrence: US)
  Receive Date: 20210507
  Receipt Date: 20210507
  Transmission Date: 20210717
  Serious: No
  Sender: FDA-Public Use
  Company Number: US-SA-2021SA147317

PATIENT
  Sex: Female
  Weight: 67.8 kg

DRUGS (1)
  1. DUPIXENT [Suspect]
     Active Substance: DUPILUMAB
     Indication: DERMATITIS ATOPIC
     Route: 058
     Dates: start: 20190107

REACTIONS (4)
  - Pruritus [Unknown]
  - Application site reaction [Unknown]
  - Dermatitis contact [Unknown]
  - Dry skin [Unknown]

NARRATIVE: CASE EVENT DATE: 2021
